FAERS Safety Report 22142238 (Version 2)
Quarter: 2023Q4

REPORT INFORMATION
  Report Type: Spontaneous
  Country: RU (occurrence: RU)
  Receive Date: 20230327
  Receipt Date: 20231006
  Transmission Date: 20240109
  Serious: Yes (Other)
  Sender: FDA-Public Use
  Company Number: RU-MLMSERVICE-20180215-1073573-1

PATIENT
  Age: 23 Year
  Sex: Female

DRUGS (8)
  1. METHYLPREDNISOLONE SODIUM SUCCINATE [Suspect]
     Active Substance: METHYLPREDNISOLONE SODIUM SUCCINATE
     Indication: Herpes gestationis
     Dosage: UNK UNK, DAILY FOR TWO WEEKS
     Route: 042
  2. PREDNISOLONE [Suspect]
     Active Substance: PREDNISOLONE
     Indication: Herpes gestationis
     Dosage: 80 MG A DAY
     Dates: start: 201610, end: 201701
  3. PREDNISOLONE [Suspect]
     Active Substance: PREDNISOLONE
     Dosage: 40 MG A DAY
     Dates: start: 201701
  4. PREDNISOLONE [Suspect]
     Active Substance: PREDNISOLONE
     Dosage: 50 MG
     Dates: start: 2017
  5. PREDNISOLONE [Suspect]
     Active Substance: PREDNISOLONE
     Dosage: 5 MG A WEEK
     Dates: start: 2017
  6. PREDNISOLONE [Suspect]
     Active Substance: PREDNISOLONE
     Dosage: 30 MG, DAILY
     Dates: start: 2017
  7. DEXAMETHASONE [Suspect]
     Active Substance: DEXAMETHASONE
     Indication: Herpes gestationis
     Dosage: 8 MG, UNK
     Dates: start: 2016
  8. DEXAMETHASONE [Suspect]
     Active Substance: DEXAMETHASONE
     Dosage: 8 MG, UNK
     Route: 042
     Dates: start: 201610, end: 201611

REACTIONS (4)
  - Spinal fracture [Unknown]
  - Pseudo Cushing^s syndrome [Recovering/Resolving]
  - Osteoporosis [Unknown]
  - Myopathy [Unknown]
